FAERS Safety Report 18402949 (Version 1)
Quarter: 2020Q4

REPORT INFORMATION
  Report Type: Other
  Country: IN (occurrence: IN)
  Receive Date: 20201019
  Receipt Date: 20201019
  Transmission Date: 20210114
  Serious: Yes (Death)
  Sender: FDA-Public Use
  Company Number: IN-B.BRAUN MEDICAL INC.-2092929

PATIENT
  Age: 52 Year
  Sex: Male

DRUGS (5)
  1. CEFTAZIDIME AND DEXTROSE [Suspect]
     Active Substance: CEFTAZIDIME
     Indication: INFECTION
     Route: 050
  2. GENTAMICIN. [Suspect]
     Active Substance: GENTAMICIN
     Route: 050
  3. COLISTIN [Suspect]
     Active Substance: COLISTIN
     Route: 050
  4. GENTAMICIN. [Concomitant]
     Active Substance: GENTAMICIN
     Route: 042
  5. COLISTIN [Concomitant]
     Active Substance: COLISTIN
     Route: 042

REACTIONS (1)
  - Intraventricular haemorrhage [None]
